FAERS Safety Report 6677312-4 (Version None)
Quarter: 2010Q2

REPORT INFORMATION
  Report Type: 
  Country: None (occurrence: None)
  Receive Date: 20100407
  Receipt Date: 20100407
  Transmission Date: 20101027
  Serious: No
  Sender: FDA-Public Use
  Company Number: None

PATIENT
  Age: 1 Day
  Sex: Male

DRUGS (1)
  1. PANCRECARB MS4 (NEEDED) [Suspect]

REACTIONS (1)
  - PRODUCT SUBSTITUTION ISSUE [None]
